FAERS Safety Report 10247274 (Version 1)
Quarter: 2014Q2

REPORT INFORMATION
  Report Type: Spontaneous
  Country: US (occurrence: US)
  Receive Date: 20140619
  Receipt Date: 20140619
  Transmission Date: 20141212
  Serious: Yes (Other)
  Sender: FDA-Public Use
  Company Number: US-OTSUKA-US-2014-11299

PATIENT
  Age: 25 Year
  Sex: Female

DRUGS (3)
  1. BUSULFEX [Suspect]
     Indication: STEM CELL TRANSPLANT
     Dosage: 130 MG/M2, X4 DAYS
     Route: 065
  2. FLUDARABINE [Suspect]
     Indication: STEM CELL TRANSPLANT
     Dosage: 40 MG/M2, X4 DAYS
     Route: 065
  3. ATG S [Suspect]
     Indication: STEM CELL TRANSPLANT
     Dosage: 4 MG/KG, UNK
     Route: 065

REACTIONS (4)
  - Aplasia pure red cell [Recovered/Resolved]
  - Iron overload [Unknown]
  - Drug administration error [Unknown]
  - Off label use [Unknown]
